APPROVED DRUG PRODUCT: BELSOMRA
Active Ingredient: SUVOREXANT
Strength: 5MG
Dosage Form/Route: TABLET;ORAL
Application: N204569 | Product #001
Applicant: MERCK SHARP AND DOHME CORP
Approved: Aug 13, 2014 | RLD: Yes | RS: No | Type: RX

PATENTS:
Patent 7951797 | Expires: Nov 20, 2029
Patent 10098892 | Expires: May 29, 2033
Patent 11980623 | Expires: May 29, 2033